FAERS Safety Report 24426965 (Version 1)
Quarter: 2024Q4

REPORT INFORMATION
  Report Type: Spontaneous
  Country: AU (occurrence: AU)
  Receive Date: 20241011
  Receipt Date: 20241011
  Transmission Date: 20250115
  Serious: Yes (Other)
  Sender: SAMSUNG BIOEPIS
  Company Number: AU-SAMSUNG BIOEPIS-SB-2024-29417

PATIENT
  Age: 32 Year
  Sex: Female
  Weight: 142 kg

DRUGS (4)
  1. ADALIMUMAB [Suspect]
     Active Substance: ADALIMUMAB
     Indication: Hidradenitis
  2. ADALIMUMAB [Suspect]
     Active Substance: ADALIMUMAB
     Indication: Pyoderma gangrenosum
  3. METHOTREXATE SODIUM [Suspect]
     Active Substance: METHOTREXATE SODIUM
     Indication: Hidradenitis
  4. MOMETASONE [Concomitant]
     Active Substance: MOMETASONE
     Indication: Pyoderma gangrenosum

REACTIONS (4)
  - Disease progression [Unknown]
  - Drug ineffective [Unknown]
  - Drug specific antibody present [Unknown]
  - Off label use [Unknown]
